FAERS Safety Report 9325182 (Version 1)
Quarter: 2013Q2

REPORT INFORMATION
  Report Type: Spontaneous
  Country: US (occurrence: US)
  Receive Date: 20130604
  Receipt Date: 20130604
  Transmission Date: 20140414
  Serious: No
  Sender: FDA-Public Use
  Company Number: US-009507513-1305USA015607

PATIENT
  Age: 15 Year
  Sex: Male
  Weight: 81.63 kg

DRUGS (2)
  1. CLARITIN REDITABS [Suspect]
     Indication: HYPERSENSITIVITY
     Dosage: 10 MG, QD
     Route: 048
     Dates: start: 20130423
  2. CLARITIN REDITABS [Suspect]
     Dosage: 20 MG, ONCE
     Route: 048
     Dates: start: 2013

REACTIONS (1)
  - Overdose [Unknown]
